FAERS Safety Report 20076678 (Version 1)
Quarter: 2021Q4

REPORT INFORMATION
  Report Type: Report from Study
  Country: CN (occurrence: CN)
  Receive Date: 20211116
  Receipt Date: 20211116
  Transmission Date: 20220303
  Serious: Yes (Other)
  Sender: FDA-Public Use
  Company Number: CN-BRISTOL-MYERS SQUIBB COMPANY-BMS-2021-120484

PATIENT
  Age: 81 Year
  Sex: Male

DRUGS (1)
  1. NIVOLUMAB [Suspect]
     Active Substance: NIVOLUMAB
     Indication: Lung neoplasm malignant
     Dosage: 300 MILLIGRAM, Q3WK
     Route: 041
     Dates: start: 20210514

REACTIONS (4)
  - Coronary artery disease [Unknown]
  - Anaemia [Unknown]
  - Asthenia [Unknown]
  - Off label use [Unknown]
